FAERS Safety Report 21843652 (Version 1)
Quarter: 2023Q1

REPORT INFORMATION
  Report Type: Spontaneous
  Country: LT (occurrence: LT)
  Receive Date: 20230110
  Receipt Date: 20230110
  Transmission Date: 20230418
  Serious: Yes (Other)
  Sender: FDA-Public Use
  Company Number: LT-MYLANLABS-2022M1141151

PATIENT
  Age: 33 Year
  Sex: Female

DRUGS (2)
  1. CLOZAPINE [Suspect]
     Active Substance: CLOZAPINE
     Indication: Schizophrenia
     Dosage: 400 MILLIGRAM, QD, MODERATE DOSE
     Route: 065
  2. CLOZAPINE [Suspect]
     Active Substance: CLOZAPINE
     Dosage: REDUCED TO 275MG/DAY
     Route: 065

REACTIONS (1)
  - Idiopathic generalised epilepsy [Recovered/Resolved]
